FAERS Safety Report 25668850 (Version 2)
Quarter: 2025Q3

REPORT INFORMATION
  Report Type: Spontaneous
  Country: US (occurrence: US)
  Receive Date: 20250812
  Receipt Date: 20250915
  Transmission Date: 20251020
  Serious: No
  Sender: MICRO LABS
  Company Number: US-862174955-ML2025-03846

PATIENT
  Age: 66 Year
  Sex: Male

DRUGS (1)
  1. KETOROLAC TROMETHAMINE [Suspect]
     Active Substance: KETOROLAC TROMETHAMINE
     Indication: Product used for unknown indication
     Dosage: DOSE: ONE DROP IN RIGHT EYE?FREQUENCY: 4 TIMES A DAY
     Route: 047
     Dates: start: 2025

REACTIONS (3)
  - Product dose omission issue [Unknown]
  - Product container issue [Unknown]
  - No adverse event [Unknown]
